FAERS Safety Report 6542881-1 (Version None)
Quarter: 2010Q1

REPORT INFORMATION
  Report Type: 
  Country: None (occurrence: None)
  Receive Date: 20100120
  Receipt Date: 20100111
  Transmission Date: 20100710
  Serious: Yes (Death)
  Sender: FDA-Public Use
  Company Number: DE-BIOGENIDEC-2010BI001017

PATIENT
  Age: 42 Year
  Sex: Female

DRUGS (2)
  1. AVONEX [Suspect]
     Indication: RELAPSING-REMITTING MULTIPLE SCLEROSIS
     Route: 030
     Dates: start: 20020101, end: 20080901
  2. AVONEX [Suspect]
     Route: 030
     Dates: start: 20090201

REACTIONS (2)
  - CARDIAC FAILURE [None]
  - INFLUENZA LIKE ILLNESS [None]
